FAERS Safety Report 8209502-3 (Version None)
Quarter: 2012Q1

REPORT INFORMATION
  Report Type: 
  Country: None (occurrence: None)
  Receive Date: 20120314
  Receipt Date: 20120309
  Transmission Date: 20120608
  Serious: Yes (Other)
  Sender: FDA-Public Use
  Company Number: US-ABBOTT-12P-163-0910729-00

PATIENT
  Sex: Male

DRUGS (4)
  1. LOVOXYL [Concomitant]
     Indication: HYPOTHYROIDISM
  2. HUMIRA [Suspect]
     Dates: start: 20120201
  3. ALTACE [Concomitant]
     Indication: HYPERTENSION
  4. HUMIRA [Suspect]
     Indication: PSORIASIS
     Dates: start: 20110401, end: 20110601

REACTIONS (6)
  - EXOSTOSIS [None]
  - NECK PAIN [None]
  - SINUSITIS [None]
  - ROTATOR CUFF SYNDROME [None]
  - ROAD TRAFFIC ACCIDENT [None]
  - BACK PAIN [None]
